FAERS Safety Report 8002768-4 (Version None)
Quarter: 2011Q4

REPORT INFORMATION
  Report Type: 
  Country: None (occurrence: None)
  Receive Date: 20111219
  Receipt Date: 20111212
  Transmission Date: 20120403
  Serious: Yes (Other)
  Sender: FDA-Public Use
  Company Number: 2011MA017665

PATIENT
  Age: 45 Year
  Sex: Female

DRUGS (8)
  1. AMITRIPTYLINE [Concomitant]
  2. OMEPRAZOLE [Concomitant]
  3. LEVOTHYROXINE SODIUM [Concomitant]
  4. CODEINE [Concomitant]
  5. ZOPICLONE [Concomitant]
  6. FLUOXETINE [Suspect]
     Indication: PRODUCT USED FOR UNKNOWN INDICATION
     Dates: start: 20111115
  7. TRANEXAMIC ACID [Concomitant]
  8. GABAPENTIN [Concomitant]

REACTIONS (5)
  - MYDRIASIS [None]
  - DYSPNOEA [None]
  - DIARRHOEA [None]
  - VOMITING [None]
  - PALPITATIONS [None]
